FAERS Safety Report 9517185 (Version 2)
Quarter: 2013Q3

REPORT INFORMATION
  Report Type: Spontaneous
  Country: US (occurrence: US)
  Receive Date: 20130911
  Receipt Date: 20130916
  Transmission Date: 20140515
  Serious: No
  Sender: FDA-Public Use
  Company Number: US-ASTRAZENECA-2013SE52431

PATIENT
  Age: 28254 Day
  Sex: Female
  Weight: 67.6 kg

DRUGS (15)
  1. SYMBICORT PMDI [Suspect]
     Indication: DYSPNOEA
     Dosage: 2 PUFFS TWO TIMES DAILY
     Route: 055
  2. SYMBICORT PMDI [Suspect]
     Indication: ASTHMA
     Dosage: 2 PUFFS TWO TIMES DAILY
     Route: 055
  3. SYMBICORT PMDI [Suspect]
     Indication: DYSPNOEA
     Dosage: 2 PUFFS DAILY, ONCE IN THE MORNING
     Route: 055
  4. SYMBICORT PMDI [Suspect]
     Indication: ASTHMA
     Dosage: 2 PUFFS DAILY, ONCE IN THE MORNING
     Route: 055
  5. NEXIUM [Suspect]
     Indication: GASTROOESOPHAGEAL REFLUX DISEASE
     Route: 048
  6. AMITRIPTYLINE [Concomitant]
     Indication: HYPERTONIC BLADDER
     Route: 048
  7. AMITRIPTYLINE [Concomitant]
     Indication: SEDATIVE THERAPY
     Route: 048
  8. CHOLESTRYAMINE [Concomitant]
     Indication: BLOOD CHOLESTEROL INCREASED
     Route: 048
  9. CITALOPRAM [Concomitant]
     Indication: DEPRESSION
     Route: 048
  10. NIASPAN [Concomitant]
     Indication: BLOOD CHOLESTEROL ABNORMAL
     Route: 048
  11. PANTOPRAZOLE [Concomitant]
     Indication: GASTROOESOPHAGEAL REFLUX DISEASE
     Route: 048
  12. TRAMADOL [Concomitant]
     Indication: PAIN
     Route: 048
  13. BONIVA [Concomitant]
     Dosage: UNKNOWN MONTH
     Route: 048
  14. VITAMINS OTC [Concomitant]
     Indication: SUPPLEMENTATION THERAPY
     Dosage: UNKNOWN
     Route: 048
  15. HORMONE REPLACEMENT [Concomitant]
     Indication: HORMONE REPLACEMENT THERAPY
     Dosage: UNKNWON
     Route: 048

REACTIONS (9)
  - Limb discomfort [Unknown]
  - Asthma [Unknown]
  - Chest pain [Unknown]
  - Hot flush [Unknown]
  - Hypothyroidism [Unknown]
  - Osteoarthritis [Unknown]
  - Dyspnoea [Recovered/Resolved]
  - Wheezing [Unknown]
  - Intentional drug misuse [Unknown]
